FAERS Safety Report 26191333 (Version 1)
Quarter: 2025Q4

REPORT INFORMATION
  Report Type: Spontaneous
  Country: CN (occurrence: CN)
  Receive Date: 20251223
  Receipt Date: 20251223
  Transmission Date: 20260117
  Serious: Yes (Other)
  Sender: SANDOZ
  Company Number: CN-002147023-NVSC2025CN194156

PATIENT
  Age: 52 Year
  Sex: Male
  Weight: 50 kg

DRUGS (2)
  1. DEXAMETHASONE\TOBRAMYCIN [Suspect]
     Active Substance: DEXAMETHASONE\TOBRAMYCIN
     Indication: Eye inflammation
     Dosage: 1 DRP, TID
     Route: 047
     Dates: start: 20240121, end: 20251126
  2. DEXAMETHASONE\TOBRAMYCIN [Suspect]
     Active Substance: DEXAMETHASONE\TOBRAMYCIN
     Dosage: 1 DRP, TID
     Route: 047
     Dates: start: 20251127, end: 20251201

REACTIONS (8)
  - Ocular hyperaemia [Unknown]
  - Eye swelling [Unknown]
  - Visual acuity reduced [Not Recovered/Not Resolved]
  - Ocular hypertension [Recovering/Resolving]
  - Eye pain [Unknown]
  - Vision blurred [Unknown]
  - Intraocular pressure increased [Recovering/Resolving]
  - Glaucoma [Not Recovered/Not Resolved]

NARRATIVE: CASE EVENT DATE: 20251127
